FAERS Safety Report 7742762-1 (Version None)
Quarter: 2011Q3

REPORT INFORMATION
  Report Type: 
  Country: None (occurrence: None)
  Receive Date: 20110902
  Receipt Date: 20110823
  Transmission Date: 20111222
  Serious: Yes (Other)
  Sender: FDA-Public Use
  Company Number: 2011SP039939

PATIENT
  Age: 63 Year
  Sex: Female

DRUGS (11)
  1. NASONEX [Suspect]
     Indication: NASAL CONGESTION
     Dates: start: 20110820
  2. DILANTIN [Concomitant]
  3. ASPIRIN [Concomitant]
  4. TRAZODONE HCL [Concomitant]
  5. CRESTOR [Concomitant]
  6. ALPRAZOLAM [Concomitant]
  7. SERTRALINE HYDROCHLORIDE [Concomitant]
  8. ALPRAZOLAM [Concomitant]
  9. AVELOX [Suspect]
     Indication: NASAL CONGESTION
     Dosage: 400 MG;QD;
  10. SERTRALINE HYDROCHLORIDE [Concomitant]
  11. RAMIPRIL [Concomitant]

REACTIONS (2)
  - HAEMOPTYSIS [None]
  - PRODUCTIVE COUGH [None]
